FAERS Safety Report 7706371-2 (Version None)
Quarter: 2011Q3

REPORT INFORMATION
  Report Type: 
  Country: None (occurrence: None)
  Receive Date: 20110824
  Receipt Date: 20110819
  Transmission Date: 20111222
  Serious: Yes (Life-Threatening)
  Sender: FDA-Public Use
  Company Number: FR-PFIZER INC-2011191842

PATIENT
  Age: 80 Year
  Sex: Male

DRUGS (13)
  1. PIPERACILLIN AND TAZOBACTAM [Suspect]
     Dosage: 6 G, 1X/DAY
     Route: 042
     Dates: start: 20110624, end: 20110718
  2. MIRTAZAPINE [Suspect]
     Indication: DEPRESSIVE SYMPTOM
     Dosage: 15 MG, 1X/DAY
     Route: 048
     Dates: start: 20110629, end: 20110717
  3. PANTOPRAZOLE [Concomitant]
     Dosage: UNK
     Dates: start: 20110530
  4. DESLORATADINE [Concomitant]
     Dosage: UNK
     Dates: start: 20110630
  5. NICARDIPINE HCL [Concomitant]
     Dosage: UNK
     Dates: start: 20110530
  6. PRIMPERAN TAB [Suspect]
     Indication: NAUSEA
     Dosage: 1 DF, 3X/DAY
     Route: 042
     Dates: start: 20110617, end: 20110719
  7. ZOFRAN [Suspect]
     Indication: NAUSEA
     Dosage: 4 MG, 3X/DAY
     Route: 048
     Dates: start: 20110623, end: 20110718
  8. DITROPAN [Concomitant]
  9. ALENDRONATE SODIUM [Concomitant]
     Dosage: 1 DF, WEEKLY
  10. METHOTREXATE [Concomitant]
     Indication: POLYARTHRITIS
     Dosage: 15 MG, WEEKLY
  11. RIFADIN [Concomitant]
     Dosage: UNK
     Dates: start: 20110622
  12. PREDNISONE [Concomitant]
     Dosage: 3 MG PER DAY
  13. FOLIC ACID [Concomitant]

REACTIONS (2)
  - MYOCLONUS [None]
  - CARDIO-RESPIRATORY ARREST [None]
